FAERS Safety Report 4542156-6 (Version None)
Quarter: 2004Q4

REPORT INFORMATION
  Report Type: 
  Country: None (occurrence: None)
  Receive Date: 20041230
  Receipt Date: 20041217
  Transmission Date: 20050328
  Serious: Yes (Hospitalization)
  Sender: FDA-Public Use
  Company Number: FRWYE290617DEC04

PATIENT
  Age: 52 Year
  Sex: Female
  Weight: 58 kg

DRUGS (9)
  1. ENBREL [Suspect]
     Indication: RHEUMATOID ARTHRITIS
     Route: 058
     Dates: start: 20030718, end: 20040921
  2. ZOCOR [Suspect]
     Route: 048
     Dates: start: 20020101, end: 20040921
  3. ATACAND [Suspect]
     Route: 048
     Dates: start: 20020101, end: 20040921
  4. VIOXX [Suspect]
     Route: 048
     Dates: start: 20030101, end: 20041015
  5. ESTRADIOL [Suspect]
     Route: 062
     Dates: start: 20020101, end: 20040921
  6. NOVATREX [Suspect]
     Indication: RHEUMATOID ARTHRITIS
     Route: 048
     Dates: start: 20030101, end: 20040921
  7. FOSAMAX [Concomitant]
     Dates: start: 20010101
  8. CACIT [Concomitant]
     Dates: start: 20010101
  9. DUPHASTON [Concomitant]
     Dates: start: 20020101

REACTIONS (7)
  - ACUTE CORONARY SYNDROME [None]
  - ANXIETY [None]
  - BLOOD PRESSURE SYSTOLIC INCREASED [None]
  - CORONARY ARTERY ATHEROSCLEROSIS [None]
  - CORONARY ARTERY STENOSIS [None]
  - EJECTION FRACTION DECREASED [None]
  - MYOCARDIAL ISCHAEMIA [None]
